FAERS Safety Report 9311100 (Version 1)
Quarter: 2013Q2

REPORT INFORMATION
  Report Type: Report from Study
  Country: US (occurrence: US)
  Receive Date: 20130528
  Receipt Date: 20130528
  Transmission Date: 20140414
  Serious: Yes (Hospitalization)
  Sender: FDA-Public Use
  Company Number: US-JNJFOC-20130407285

PATIENT
  Age: 26 Year
  Sex: Female

DRUGS (7)
  1. REMICADE [Suspect]
     Indication: PRODUCT USED FOR UNKNOWN INDICATION
     Route: 042
     Dates: start: 20071201
  2. LABETALOL [Suspect]
     Indication: HYPERTENSION
     Route: 065
     Dates: start: 20120501, end: 20130501
  3. PANTOPRAZOLE [Suspect]
     Indication: GASTROOESOPHAGEAL REFLUX DISEASE
     Route: 065
     Dates: start: 20120501, end: 20130501
  4. SINGULAIR [Suspect]
     Indication: MULTIPLE ALLERGIES
     Route: 065
     Dates: start: 20110501
  5. VITAMIN D [Concomitant]
     Route: 065
  6. VITAMIN B6 [Concomitant]
     Route: 065
  7. FOLIC ACID [Concomitant]
     Route: 065

REACTIONS (2)
  - Caesarean section [Recovered/Resolved]
  - Exposure during pregnancy [Recovered/Resolved]
